FAERS Safety Report 16271463 (Version 3)
Quarter: 2019Q2

REPORT INFORMATION
  Report Type: Spontaneous
  Country: FR (occurrence: FR)
  Receive Date: 20190503
  Receipt Date: 20190523
  Transmission Date: 20190711
  Serious: Yes (Death, Hospitalization)
  Sender: FDA-Public Use
  Company Number: FR-BIOGEN-2019BI00730251

PATIENT
  Age: 30 Year
  Sex: Female

DRUGS (6)
  1. TECFIDERA [Suspect]
     Active Substance: DIMETHYL FUMARATE
     Dosage: MAINTENANCE DOSE
     Route: 065
  2. LYRICA [Concomitant]
     Active Substance: PREGABALIN
     Indication: PRODUCT USED FOR UNKNOWN INDICATION
     Route: 065
  3. TECFIDERA [Suspect]
     Active Substance: DIMETHYL FUMARATE
     Indication: MULTIPLE SCLEROSIS
     Route: 065
     Dates: start: 201808
  4. CERAZETTE [Concomitant]
     Indication: PRODUCT USED FOR UNKNOWN INDICATION
     Route: 065
  5. TECFIDERA [Suspect]
     Active Substance: DIMETHYL FUMARATE
     Dosage: FULL DOSE
     Route: 065
     Dates: start: 201811
  6. TECFIDERA [Suspect]
     Active Substance: DIMETHYL FUMARATE
     Dosage: MAINTENANCE DOSE
     Route: 065
     Dates: start: 201811

REACTIONS (10)
  - Legionella infection [Fatal]
  - Pneumonia [Fatal]
  - Pulmonary sepsis [Fatal]
  - Enterobacter infection [Fatal]
  - Drug titration error [Recovered/Resolved]
  - Pneumococcal infection [Unknown]
  - Anastomotic ulcer [Unknown]
  - Candida infection [Fatal]
  - Multiple sclerosis [Fatal]
  - Influenza [Unknown]

NARRATIVE: CASE EVENT DATE: 201812
